FAERS Safety Report 5618591-1 (Version None)
Quarter: 2008Q1

REPORT INFORMATION
  Report Type: 
  Country: None (occurrence: None)
  Receive Date: 20080205
  Receipt Date: 20080205
  Transmission Date: 20080703
  Serious: Yes (Hospitalization, Other)
  Sender: FDA-Public Use
  Company Number: None

PATIENT
  Age: 83 Year
  Sex: Female
  Weight: 81.1939 kg

DRUGS (1)
  1. AVALIDE [Suspect]
     Dates: start: 20080128, end: 20080202

REACTIONS (3)
  - DYSPHAGIA [None]
  - RASH [None]
  - SWOLLEN TONGUE [None]
